FAERS Safety Report 24570145 (Version 1)
Quarter: 2024Q4

REPORT INFORMATION
  Report Type: Spontaneous
  Country: CY (occurrence: CY)
  Receive Date: 20241031
  Receipt Date: 20241031
  Transmission Date: 20250115
  Serious: Yes (Other)
  Sender: ABBVIE
  Company Number: CY-RECORDATI-2024008203

PATIENT
  Age: 47 Year
  Sex: Female

DRUGS (2)
  1. CARIPRAZINE [Suspect]
     Active Substance: CARIPRAZINE
     Indication: Off label use
     Dosage: DOSE TITRATED FROM 3 MG, TO 4.5 MG TO 6 MG?LAST ADMIN DATE- 2024
     Route: 065
     Dates: start: 20240430
  2. CARIPRAZINE [Suspect]
     Active Substance: CARIPRAZINE
     Indication: Off label use
     Dosage: 6 MG
     Route: 065
     Dates: start: 202408

REACTIONS (2)
  - Hallucination, auditory [Not Recovered/Not Resolved]
  - Product use in unapproved indication [Not Recovered/Not Resolved]

NARRATIVE: CASE EVENT DATE: 20240430
